FAERS Safety Report 8992094 (Version 2)
Quarter: 2013Q1

REPORT INFORMATION
  Report Type: Spontaneous
  Country: JP (occurrence: JP)
  Receive Date: 20121231
  Receipt Date: 20130201
  Transmission Date: 20140127
  Serious: Yes (Other)
  Sender: FDA-Public Use
  Company Number: JP-ASTELLAS-2012JP003341

PATIENT
  Sex: 0

DRUGS (3)
  1. PROGRAF [Suspect]
     Indication: COLITIS ULCERATIVE
     Dosage: UNK
     Route: 048
  2. PROGRAF [Suspect]
     Dosage: 2 MG, BID
     Route: 048
  3. 5 ASA [Concomitant]
     Route: 065

REACTIONS (1)
  - Renal disorder [Unknown]
